FAERS Safety Report 10155088 (Version 2)
Quarter: 2014Q3

REPORT INFORMATION
  Report Type: Spontaneous
  Country: US (occurrence: US)
  Receive Date: 20140506
  Receipt Date: 20140730
  Transmission Date: 20150326
  Serious: No
  Sender: FDA-Public Use
  Company Number: US-GILEAD-2014-0101602

PATIENT
  Age: 53 Year
  Sex: Female

DRUGS (12)
  1. FLONASE                            /00908302/ [Concomitant]
  2. NEOSPORIN                          /00038301/ [Concomitant]
  3. LETAIRIS [Suspect]
     Active Substance: AMBRISENTAN
     Indication: PULMONARY HYPERTENSION
     Dosage: 10 MG, QD
     Route: 065
     Dates: start: 20140306
  4. ADCIRCA [Suspect]
     Active Substance: TADALAFIL
     Indication: PRODUCT USED FOR UNKNOWN INDICATION
     Route: 065
     Dates: start: 20140331
  5. NIFEDIPINE. [Concomitant]
     Active Substance: NIFEDIPINE
  6. TRAMADOL [Concomitant]
     Active Substance: TRAMADOL
  7. VITAMIN D                          /00107901/ [Concomitant]
     Active Substance: ERGOCALCIFEROL
  8. DEXILANT [Concomitant]
     Active Substance: DEXLANSOPRAZOLE
  9. LETAIRIS [Suspect]
     Active Substance: AMBRISENTAN
     Indication: SCLERODERMA
  10. NITRO-BID [Concomitant]
     Active Substance: NITROGLYCERIN
  11. VENTOLIN [Concomitant]
     Active Substance: ALBUTEROL SULFATE
  12. OPCON-A [Concomitant]
     Active Substance: NAPHAZOLINE HYDROCHLORIDE\PHENIRAMINE MALEATE

REACTIONS (3)
  - Headache [Recovered/Resolved]
  - Joint swelling [Recovered/Resolved]
  - Epistaxis [Recovered/Resolved]

NARRATIVE: CASE EVENT DATE: 20140401
